FAERS Safety Report 17227147 (Version 1)
Quarter: 2020Q1

REPORT INFORMATION
  Report Type: Report from Study
  Country: None (occurrence: FR)
  Receive Date: 20200103
  Receipt Date: 20200103
  Transmission Date: 20200409
  Serious: Yes (Death)
  Sender: FDA-Public Use
  Company Number: FR-ABBVIE-19K-056-3168640-00

PATIENT
  Sex: Male

DRUGS (2)
  1. DUODOPA [Suspect]
     Active Substance: CARBIDOPA\LEVODOPA
     Indication: PARKINSON^S DISEASE
     Route: 050
     Dates: start: 20141104
  2. DUODOPA [Suspect]
     Active Substance: CARBIDOPA\LEVODOPA
     Dosage: FLOW-RATE OF NIGHT 2.2ML, 2 CASSETTE A DAY
     Route: 050
     Dates: start: 20191023

REACTIONS (3)
  - Underdose [Unknown]
  - Death [Fatal]
  - Product cleaning inadequate [Unknown]

NARRATIVE: CASE EVENT DATE: 20191023
